FAERS Safety Report 9029424 (Version 3)
Quarter: 2013Q1

REPORT INFORMATION
  Report Type: Report from Study
  Country: US (occurrence: US)
  Receive Date: 20130125
  Receipt Date: 20130227
  Transmission Date: 20140127
  Serious: Yes (Other)
  Sender: FDA-Public Use
  Company Number: US-ABBOTT-12P-163-0997749-00

PATIENT
  Age: 47 None
  Sex: Female
  Weight: 64.92 kg

DRUGS (11)
  1. HUMIRA [Suspect]
     Indication: CROHN^S DISEASE
     Dates: start: 201205, end: 20121024
  2. HUMIRA [Suspect]
     Dates: start: 20121123
  3. TOPIRAMATE [Suspect]
     Indication: HEADACHE
     Dates: start: 201208, end: 201208
  4. TOPIRAMATE [Suspect]
     Dates: start: 201208, end: 20130114
  5. TOPIRAMATE [Suspect]
     Dates: start: 20130115
  6. CALCIUM WITH VITAMIN D [Concomitant]
     Indication: MINERAL SUPPLEMENTATION
  7. 6-MP [Concomitant]
     Indication: PRODUCT USED FOR UNKNOWN INDICATION
  8. SUMATRIPTAN [Concomitant]
     Indication: PRODUCT USED FOR UNKNOWN INDICATION
  9. B-12 [Concomitant]
     Indication: VITAMIN SUPPLEMENTATION
  10. CRANBERRY [Concomitant]
     Indication: VITAMIN SUPPLEMENTATION
  11. TYLENOL [Concomitant]

REACTIONS (16)
  - Ureteric obstruction [Recovered/Resolved]
  - Headache [Not Recovered/Not Resolved]
  - Injection site bruising [Recovered/Resolved]
  - Back pain [Not Recovered/Not Resolved]
  - Abdominal pain [Not Recovered/Not Resolved]
  - Fatigue [Not Recovered/Not Resolved]
  - Vomiting [Not Recovered/Not Resolved]
  - Headache [Not Recovered/Not Resolved]
  - Headache [Not Recovered/Not Resolved]
  - Anxiety [Recovered/Resolved]
  - Feeling jittery [Recovered/Resolved]
  - Vision blurred [Recovered/Resolved]
  - Feeling abnormal [Recovered/Resolved]
  - Kidney infection [Recovered/Resolved]
  - Nephrolithiasis [Recovered/Resolved]
  - Fatigue [Recovered/Resolved]
